FAERS Safety Report 25785731 (Version 1)
Quarter: 2025Q3

REPORT INFORMATION
  Report Type: Spontaneous
  Country: US (occurrence: US)
  Receive Date: 20250910
  Receipt Date: 20250910
  Transmission Date: 20251021
  Serious: Yes (Other)
  Sender: MYLAN
  Company Number: US-MYLANLABS-2025M1076409

PATIENT
  Age: 45 Year
  Sex: Male

DRUGS (40)
  1. ACETAMINOPHEN [Suspect]
     Active Substance: ACETAMINOPHEN
     Indication: Hereditary haemochromatosis
  2. ACETAMINOPHEN [Suspect]
     Active Substance: ACETAMINOPHEN
     Indication: Pain
     Route: 065
  3. ACETAMINOPHEN [Suspect]
     Active Substance: ACETAMINOPHEN
     Route: 065
  4. ACETAMINOPHEN [Suspect]
     Active Substance: ACETAMINOPHEN
  5. CARISOPRODOL [Suspect]
     Active Substance: CARISOPRODOL
     Indication: Hereditary haemochromatosis
  6. CARISOPRODOL [Suspect]
     Active Substance: CARISOPRODOL
     Indication: Pain
     Route: 065
  7. CARISOPRODOL [Suspect]
     Active Substance: CARISOPRODOL
     Route: 065
  8. CARISOPRODOL [Suspect]
     Active Substance: CARISOPRODOL
  9. DEXAMETHASONE [Suspect]
     Active Substance: DEXAMETHASONE
     Indication: Hereditary haemochromatosis
  10. DEXAMETHASONE [Suspect]
     Active Substance: DEXAMETHASONE
     Indication: Pain
     Route: 065
  11. DEXAMETHASONE [Suspect]
     Active Substance: DEXAMETHASONE
     Route: 065
  12. DEXAMETHASONE [Suspect]
     Active Substance: DEXAMETHASONE
  13. PREGABALIN [Suspect]
     Active Substance: PREGABALIN
     Indication: Hereditary haemochromatosis
  14. PREGABALIN [Suspect]
     Active Substance: PREGABALIN
     Indication: Pain
     Route: 065
  15. PREGABALIN [Suspect]
     Active Substance: PREGABALIN
     Route: 065
  16. PREGABALIN [Suspect]
     Active Substance: PREGABALIN
  17. OXYCODONE [Suspect]
     Active Substance: OXYCODONE
     Indication: Hereditary haemochromatosis
  18. OXYCODONE [Suspect]
     Active Substance: OXYCODONE
     Indication: Pain
     Route: 065
  19. OXYCODONE [Suspect]
     Active Substance: OXYCODONE
     Route: 065
  20. OXYCODONE [Suspect]
     Active Substance: OXYCODONE
  21. CYCLOBENZAPRINE [Suspect]
     Active Substance: CYCLOBENZAPRINE
     Indication: Hereditary haemochromatosis
  22. CYCLOBENZAPRINE [Suspect]
     Active Substance: CYCLOBENZAPRINE
     Indication: Pain
     Route: 065
  23. CYCLOBENZAPRINE [Suspect]
     Active Substance: CYCLOBENZAPRINE
     Route: 065
  24. CYCLOBENZAPRINE [Suspect]
     Active Substance: CYCLOBENZAPRINE
  25. BACLOFEN [Suspect]
     Active Substance: BACLOFEN
     Indication: Hereditary haemochromatosis
  26. BACLOFEN [Suspect]
     Active Substance: BACLOFEN
     Indication: Pain
     Route: 065
  27. BACLOFEN [Suspect]
     Active Substance: BACLOFEN
     Route: 065
  28. BACLOFEN [Suspect]
     Active Substance: BACLOFEN
  29. AMITRIPTYLINE [Suspect]
     Active Substance: AMITRIPTYLINE
     Indication: Hereditary haemochromatosis
  30. AMITRIPTYLINE [Suspect]
     Active Substance: AMITRIPTYLINE
     Indication: Pain
     Route: 065
  31. AMITRIPTYLINE [Suspect]
     Active Substance: AMITRIPTYLINE
     Route: 065
  32. AMITRIPTYLINE [Suspect]
     Active Substance: AMITRIPTYLINE
  33. TIZANIDINE [Suspect]
     Active Substance: TIZANIDINE
     Indication: Hereditary haemochromatosis
  34. TIZANIDINE [Suspect]
     Active Substance: TIZANIDINE
     Indication: Pain
     Route: 065
  35. TIZANIDINE [Suspect]
     Active Substance: TIZANIDINE
     Route: 065
  36. TIZANIDINE [Suspect]
     Active Substance: TIZANIDINE
  37. GABAPENTIN [Concomitant]
     Active Substance: GABAPENTIN
     Indication: Hereditary haemochromatosis
  38. GABAPENTIN [Concomitant]
     Active Substance: GABAPENTIN
     Indication: Pain
     Route: 065
  39. GABAPENTIN [Concomitant]
     Active Substance: GABAPENTIN
     Route: 065
  40. GABAPENTIN [Concomitant]
     Active Substance: GABAPENTIN

REACTIONS (1)
  - Drug ineffective [Unknown]
